FAERS Safety Report 4735961-4 (Version None)
Quarter: 2005Q3

REPORT INFORMATION
  Report Type: 
  Country: None (occurrence: None)
  Receive Date: 20050805
  Receipt Date: 20041020
  Transmission Date: 20060218
  Serious: Yes (Hospitalization)
  Sender: FDA-Public Use
  Company Number: DE-MERCK-0410DEU00601

PATIENT
  Age: 63 Year
  Sex: Female
  Weight: 68 kg

DRUGS (10)
  1. VIOXX [Suspect]
     Indication: PSORIATIC ARTHROPATHY
     Route: 048
     Dates: start: 19991101, end: 20040901
  2. VIOXX [Suspect]
     Indication: ENTHESOPATHY
     Route: 048
     Dates: start: 19991101, end: 20040901
  3. DICLOFENAC RESINATE [Concomitant]
     Route: 048
  4. FLECAINIDE ACETATE [Concomitant]
     Route: 048
  5. VERAPAMIL HYDROCHLORIDE [Concomitant]
     Route: 065
  6. VITAMIN E [Concomitant]
     Route: 065
  7. AESCULUS [Concomitant]
     Route: 065
  8. ZOLPIDEM TARTRATE [Concomitant]
     Route: 048
  9. EQUILIN SODIUM SULFATE AND ESTRONE SODIUM SULFATE [Concomitant]
     Indication: MENOPAUSAL SYMPTOMS
     Route: 048
  10. [THERAPY UNSPECIFIED] [Concomitant]
     Indication: GASTROOESOPHAGEAL REFLUX DISEASE
     Route: 065

REACTIONS (5)
  - ATRIAL FIBRILLATION [None]
  - CHEST PAIN [None]
  - PSORIATIC ARTHROPATHY [None]
  - TENOSYNOVITIS [None]
  - TRANSIENT ISCHAEMIC ATTACK [None]
